FAERS Safety Report 8350401-4 (Version None)
Quarter: 2012Q2

REPORT INFORMATION
  Report Type: 
  Country: None (occurrence: None)
  Receive Date: 20120510
  Receipt Date: 20120506
  Transmission Date: 20120825
  Serious: Yes (Life-Threatening, Hospitalization, Other)
  Sender: FDA-Public Use
  Company Number: DE-BAYER-2012-007670

PATIENT
  Age: 26 Year
  Sex: Female

DRUGS (6)
  1. VALETTE [Suspect]
     Indication: ORAL CONTRACEPTION
     Dosage: 1 DF, QD
     Route: 048
     Dates: start: 20110301, end: 20111101
  2. DROSPIRENONE AND ETHINYL ESTRADIOL [Suspect]
     Dosage: 1 DF, QD
     Route: 048
     Dates: start: 20030501, end: 20091101
  3. MAXIM [Suspect]
     Indication: ORAL CONTRACEPTION
     Dosage: 1 DF, QD
     Route: 048
     Dates: start: 20110301, end: 20111101
  4. YAZ [Suspect]
     Dosage: 1 DF, QD
     Route: 048
     Dates: start: 20091201, end: 20100101
  5. LEVONORGESTREL AND ETHINYL ESTRADIOL [Suspect]
     Dosage: 1 DF, QD
     Route: 048
     Dates: start: 20020601, end: 20030401
  6. DROSPIRENONE AND ETHINYL ESTRADIOL [Suspect]
     Dosage: 1 DF, QD
     Route: 048
     Dates: start: 20100201, end: 20110301

REACTIONS (11)
  - FLUID RETENTION [None]
  - FATIGUE [None]
  - ALOPECIA [None]
  - ABDOMINAL PAIN [None]
  - NIGHT SWEATS [None]
  - MIGRAINE [None]
  - HEPATIC HAEMORRHAGE [None]
  - SLEEP DISORDER [None]
  - SKIN DISORDER [None]
  - HEPATIC ADENOMA [None]
  - WEIGHT INCREASED [None]
